FAERS Safety Report 19431952 (Version 1)
Quarter: 2021Q2

REPORT INFORMATION
  Report Type: Spontaneous
  Country: US (occurrence: US)
  Receive Date: 20210617
  Receipt Date: 20210617
  Transmission Date: 20210717
  Serious: Yes (Other)
  Sender: FDA-Public Use
  Company Number: US-PFIZER INC-2021659190

PATIENT
  Age: 50 Year
  Sex: Female

DRUGS (7)
  1. GABAPENTIN. [Concomitant]
     Active Substance: GABAPENTIN
  2. TRIAMTERENE. [Concomitant]
     Active Substance: TRIAMTERENE
  3. METHOTREXATE SODIUM. [Suspect]
     Active Substance: METHOTREXATE SODIUM
     Dosage: 1 DF, DAILY
     Dates: start: 20210507
  4. ETODOLAC. [Concomitant]
     Active Substance: ETODOLAC
  5. SPIRONOLACTONE. [Concomitant]
     Active Substance: SPIRONOLACTONE
  6. ESTRADIOL. [Concomitant]
     Active Substance: ESTRADIOL
  7. VITAMINS NOS [Concomitant]
     Active Substance: VITAMINS

REACTIONS (2)
  - Drug hypersensitivity [Unknown]
  - Gastric haemorrhage [Unknown]
